FAERS Safety Report 7109778-X (Version None)
Quarter: 2010Q4

REPORT INFORMATION
  Report Type: 
  Country: None (occurrence: None)
  Receive Date: 20101116
  Receipt Date: 20101116
  Transmission Date: 20110411
  Serious: Yes (Hospitalization)
  Sender: FDA-Public Use
  Company Number: None

PATIENT
  Sex: Female

DRUGS (1)
  1. DESMOPRESSIN ACETATE [Suspect]
     Dosage: 2 SPRAYS NASALLY THREE TIMES A DAY
     Route: 045
     Dates: start: 20101031

REACTIONS (2)
  - BLOOD SODIUM DECREASED [None]
  - INCORRECT STORAGE OF DRUG [None]
